FAERS Safety Report 12866571 (Version 5)
Quarter: 2016Q4

REPORT INFORMATION
  Report Type: Spontaneous
  Country: US (occurrence: US)
  Receive Date: 20161020
  Receipt Date: 20161122
  Transmission Date: 20170207
  Serious: Yes (Other)
  Sender: FDA-Public Use
  Company Number: US-ELI_LILLY_AND_COMPANY-US201610004847

PATIENT
  Age: 54 Year
  Sex: Female
  Weight: 83.4 kg

DRUGS (6)
  1. FLOLAN [Suspect]
     Active Substance: EPOPROSTENOL SODIUM
     Dosage: 64NG/KG/MIN,CONTINUOUS
     Route: 042
  2. LETAIRIS [Suspect]
     Active Substance: AMBRISENTAN
     Indication: PRODUCT USED FOR UNKNOWN INDICATION
     Dosage: UNK, UNKNOWN
     Route: 065
  3. ADCIRCA [Suspect]
     Active Substance: TADALAFIL
     Indication: PRODUCT USED FOR UNKNOWN INDICATION
     Dosage: 40 MG, QD
     Route: 065
     Dates: start: 20160801
  4. ADCIRCA [Suspect]
     Active Substance: TADALAFIL
     Dosage: 30 MG, QD
     Route: 065
  5. FLOLAN [Suspect]
     Active Substance: EPOPROSTENOL SODIUM
     Indication: PULMONARY ARTERIAL HYPERTENSION
     Dosage: 49.7 DF, OTHER
     Route: 042
     Dates: start: 20060725
  6. FLOLAN [Suspect]
     Active Substance: EPOPROSTENOL SODIUM
     Dosage: 56.9 DF, OTHER
     Route: 042

REACTIONS (27)
  - Angina pectoris [Unknown]
  - Vision blurred [Unknown]
  - Weight decreased [Not Recovered/Not Resolved]
  - Diarrhoea [Recovering/Resolving]
  - Visual impairment [Unknown]
  - Blood magnesium decreased [Unknown]
  - Feeling abnormal [Unknown]
  - Pain in extremity [Unknown]
  - Gastrooesophageal reflux disease [Unknown]
  - Visual impairment [Unknown]
  - Migraine [Unknown]
  - Headache [Unknown]
  - Oxygen saturation decreased [Unknown]
  - Depression [Not Recovered/Not Resolved]
  - Vomiting [Unknown]
  - Confusional state [Unknown]
  - Alopecia [Unknown]
  - Back pain [Unknown]
  - Fatigue [Recovered/Resolved]
  - Joint crepitation [Not Recovered/Not Resolved]
  - Hypoaesthesia [Not Recovered/Not Resolved]
  - Amnesia [Unknown]
  - Sinus headache [Unknown]
  - Asthenia [Unknown]
  - Hypoacusis [Unknown]
  - Thyroid mass [Unknown]
  - Neuropathy peripheral [Recovering/Resolving]

NARRATIVE: CASE EVENT DATE: 201608
